FAERS Safety Report 4929507-5 (Version None)
Quarter: 2006Q1

REPORT INFORMATION
  Report Type: 
  Country: None (occurrence: None)
  Receive Date: 20060224
  Receipt Date: 20060215
  Transmission Date: 20060701
  Serious: Yes (Life-Threatening, Hospitalization, Other)
  Sender: FDA-Public Use
  Company Number: 2006-01-0842

PATIENT
  Age: 54 Year
  Sex: Female

DRUGS (4)
  1. TEMODAL [Suspect]
     Indication: GLIOBLASTOMA MULTIFORME
     Dosage: 75 MG/M2 QD ORAL
     Route: 048
     Dates: start: 20051017, end: 20051117
  2. RADIATION THERAPY [Concomitant]
  3. FORTECORTIN [Concomitant]
  4. DAONIL [Concomitant]

REACTIONS (4)
  - BONE MARROW FAILURE [None]
  - PYREXIA [None]
  - RESPIRATORY FAILURE [None]
  - SUBDURAL HAEMATOMA [None]
